FAERS Safety Report 9342018 (Version 1)
Quarter: 2013Q2

REPORT INFORMATION
  Report Type: Spontaneous
  Country: IT (occurrence: None)
  Receive Date: 20130606
  Receipt Date: 20130606
  Transmission Date: 20140414
  Serious: Yes (Other)
  Sender: FDA-Public Use
  Company Number: AUR-APL-2013-04557

PATIENT
  Age: 41 Year
  Sex: Male

DRUGS (3)
  1. AMOXICILLIN (AMOXICILLIN) [Suspect]
     Indication: HELICOBACTER INFECTION
     Dosage: 1 GM, TOTAL, ORAL
     Route: 048
     Dates: start: 20130518, end: 20130518
  2. CLARITHROMYCIN (CLARITHROMYCIN) [Suspect]
     Indication: HELICOBACTER INFECTION
     Dosage: 500 MG, TOTAL, ORAL
     Route: 048
     Dates: start: 20130518, end: 20130518
  3. ESOPRAL [Suspect]
     Indication: HELICOBACTER INFECTION
     Dosage: 1 DOSAGE FORMS, TOTAL, ORAL
     Route: 048
     Dates: start: 20130518, end: 20130518

REACTIONS (2)
  - Dyspnoea [None]
  - Rash pruritic [None]
